FAERS Safety Report 8405757-0 (Version None)
Quarter: 2012Q1

REPORT INFORMATION
  Report Type: 
  Country: None (occurrence: None)
  Receive Date: 20120323
  Receipt Date: 20110527
  Transmission Date: 20120608
  Serious: Yes (Other)
  Sender: FDA-Public Use
  Company Number: 163-21880-11050895

PATIENT
  Age: 76 Year
  Sex: Male
  Weight: 80.7403 kg

DRUGS (4)
  1. REVLIMID [Suspect]
     Indication: MULTIPLE MYELOMA
     Dosage: 25 MG, QD FOR 21 DAYS EVERY 28 DAYS, PO
     Route: 048
     Dates: start: 20110411, end: 20110501
  2. LISINOPRIL [Concomitant]
  3. VICODIN [Concomitant]
  4. AMBIEN [Concomitant]

REACTIONS (7)
  - WEIGHT DECREASED [None]
  - AGEUSIA [None]
  - LUNG INFECTION [None]
  - DIARRHOEA [None]
  - ALOPECIA [None]
  - ASTHENIA [None]
  - DECREASED APPETITE [None]
